FAERS Safety Report 14236534 (Version 2)
Quarter: 2018Q1

REPORT INFORMATION
  Report Type: Spontaneous
  Country: JP (occurrence: JP)
  Receive Date: 20171129
  Receipt Date: 20180129
  Transmission Date: 20180508
  Serious: Yes (Other)
  Sender: FDA-Public Use
  Company Number: JP-ASTELLAS-2017JP022712AA

PATIENT
  Age: 65 Year
  Sex: Male

DRUGS (7)
  1. PROGRAF [Suspect]
     Active Substance: TACROLIMUS\TACROLIMUS ANHYDROUS
     Indication: GLOMERULONEPHRITIS RAPIDLY PROGRESSIVE
     Dosage: UNK UNK, UNKNOWN FREQ.
     Route: 065
  2. PREDNISOLONE. [Concomitant]
     Active Substance: PREDNISOLONE
     Route: 065
  3. PREDNISOLONE. [Concomitant]
     Active Substance: PREDNISOLONE
     Indication: STEROID THERAPY
     Dosage: UNK UNK, UNKNOWN FREQ.
     Route: 065
  4. MIZORIBINE [Concomitant]
     Active Substance: MIZORIBINE
     Indication: ANTINEUTROPHIL CYTOPLASMIC ANTIBODY POSITIVE
  5. PREDNISOLONE. [Concomitant]
     Active Substance: PREDNISOLONE
     Indication: STEROID THERAPY
     Dosage: UNK UNK, UNKNOWN FREQ.
     Route: 065
  6. MIZORIBINE [Concomitant]
     Active Substance: MIZORIBINE
     Indication: GLOMERULONEPHRITIS RAPIDLY PROGRESSIVE
     Dosage: UNK UNK, UNKNOWN FREQ.
     Route: 065
  7. PROGRAF [Suspect]
     Active Substance: TACROLIMUS\TACROLIMUS ANHYDROUS
     Indication: ANTINEUTROPHIL CYTOPLASMIC ANTIBODY POSITIVE

REACTIONS (2)
  - Anti-neutrophil cytoplasmic antibody positive vasculitis [Unknown]
  - Off label use [Unknown]
